FAERS Safety Report 8376690-8 (Version None)
Quarter: 2012Q2

REPORT INFORMATION
  Report Type: 
  Country: None (occurrence: None)
  Receive Date: 20120522
  Receipt Date: 20120509
  Transmission Date: 20120825
  Serious: Yes (Other)
  Sender: FDA-Public Use
  Company Number: JP-UCBSA-057170

PATIENT

DRUGS (1)
  1. XYZAL [Suspect]
     Route: 048
     Dates: start: 20120301

REACTIONS (2)
  - ACUTE ABDOMEN [None]
  - MUSCLE SPASMS [None]
